FAERS Safety Report 8576085-8 (Version None)
Quarter: 2012Q2

REPORT INFORMATION
  Report Type: 
  Country: None (occurrence: None)
  Receive Date: 20120423
  Receipt Date: 20100913
  Transmission Date: 20120825
  Serious: Yes (Other)
  Sender: FDA-Public Use
  Company Number: PHHY2010US60562

PATIENT
  Sex: Male
  Weight: 80 kg

DRUGS (1)
  1. EXJADE [Suspect]
     Indication: NEOPLASM
     Dosage: 1500 MG, QD, ORAL
     Route: 048
     Dates: start: 20100208

REACTIONS (1)
  - NEOPLASM PROGRESSION [None]
